FAERS Safety Report 21521213 (Version 2)
Quarter: 2023Q1

REPORT INFORMATION
  Report Type: Spontaneous
  Country: US (occurrence: US)
  Receive Date: 20221028
  Receipt Date: 20230104
  Transmission Date: 20230418
  Serious: Yes (Other)
  Sender: FDA-Public Use
  Company Number: US-BRISTOL-MYERS SQUIBB COMPANY-2022-128274

PATIENT
  Age: 83 Year
  Sex: Female

DRUGS (2)
  1. ELIQUIS [Suspect]
     Active Substance: APIXABAN
     Indication: Product used for unknown indication
     Route: 048
  2. TYLENOL [Concomitant]
     Active Substance: ACETAMINOPHEN
     Indication: Pain
     Dosage: TAKE 2 TABLETS (650 MG TOTAL) BY MOUTH EVERY 6 HOURS AS NEEDED FOR PAIN
     Route: 048
     Dates: start: 20221028

REACTIONS (4)
  - Migraine [Unknown]
  - Uterine disorder [Unknown]
  - Dementia [Unknown]
  - Ocular discomfort [Unknown]
